FAERS Safety Report 9158032 (Version 1)
Quarter: 2013Q1

REPORT INFORMATION
  Report Type: Report from Study
  Country: US (occurrence: US)
  Receive Date: 20130312
  Receipt Date: 20130312
  Transmission Date: 20140127
  Serious: Yes (Hospitalization)
  Sender: FDA-Public Use
  Company Number: US-ROCHE-1199678

PATIENT
  Age: 62 Year
  Sex: Female
  Weight: 71.65 kg

DRUGS (6)
  1. RITUXIMAB [Suspect]
     Indication: NON-HODGKIN^S LYMPHOMA
     Route: 042
     Dates: start: 20110815, end: 20120104
  2. RITUXIMAB [Suspect]
     Route: 042
     Dates: start: 20120221, end: 20121101
  3. BORTEZOMIB [Suspect]
     Indication: NON-HODGKIN^S LYMPHOMA
     Route: 042
     Dates: start: 20110815, end: 20120104
  4. BENDAMUSTINE [Suspect]
     Indication: NON-HODGKIN^S LYMPHOMA
     Route: 042
     Dates: start: 20110815, end: 20120104
  5. LORAZEPAM [Concomitant]
  6. VITAMIN D3 [Concomitant]

REACTIONS (1)
  - Hepatitis [Not Recovered/Not Resolved]
